FAERS Safety Report 11148279 (Version 2)
Quarter: 2015Q2

REPORT INFORMATION
  Report Type: Spontaneous
  Country: FR (occurrence: None)
  Receive Date: 20150527
  Receipt Date: 20150604
  Transmission Date: 20150821
  Serious: Yes (Death)
  Sender: FDA-Public Use
  Company Number: 2015FE01610

PATIENT
  Age: 1 Month

DRUGS (2)
  1. SYNTOCINON (OXYTOCIN) 5UI/500 ML [Concomitant]
  2. PROPESS (DINOPROSTONE) VAGINAL DELIVERY SYSTEM [Suspect]
     Active Substance: DINOPROSTONE
     Indication: LABOUR INDUCTION
     Dosage: 10 MG, ONCE/SINGLE
     Route: 064
     Dates: start: 20141226, end: 20141226

REACTIONS (3)
  - Foetal exposure during pregnancy [None]
  - Caesarean section [None]
  - Foetal exposure during delivery [None]

NARRATIVE: CASE EVENT DATE: 20150127
